FAERS Safety Report 17980728 (Version 1)
Quarter: 2020Q3

REPORT INFORMATION
  Report Type: Spontaneous
  Country: IT (occurrence: IT)
  Receive Date: 20200704
  Receipt Date: 20200704
  Transmission Date: 20201103
  Serious: Yes (Other)
  Sender: FDA-Public Use
  Company Number: IT-AMGEN-ITANI2020103839

PATIENT
  Age: 72 Year
  Weight: 78 kg

DRUGS (3)
  1. BEVACIZUMAB. [Suspect]
     Active Substance: BEVACIZUMAB
     Dosage: UNK
     Route: 042
  2. ATEZOLIZUMAB. [Suspect]
     Active Substance: ATEZOLIZUMAB
     Indication: LUNG CARCINOMA CELL TYPE UNSPECIFIED STAGE IV
     Dosage: 1200 MILLIGRAM, Q3WK, 2 CYCLES
     Route: 041
     Dates: start: 20200323
  3. BEVACIZUMAB. [Suspect]
     Active Substance: BEVACIZUMAB
     Indication: LUNG CARCINOMA CELL TYPE UNSPECIFIED STAGE IV
     Dosage: 15 MILLIGRAM/KILOGRAM, Q3WK, 2 CYCLES
     Route: 042
     Dates: start: 20200323

REACTIONS (5)
  - Hypertension [Recovered/Resolved]
  - Areflexia [Unknown]
  - Ataxia [Unknown]
  - Hypothyroidism [Recovered/Resolved]
  - Neutropenia [Unknown]

NARRATIVE: CASE EVENT DATE: 20200409
